FAERS Safety Report 11772673 (Version 1)
Quarter: 2015Q4

REPORT INFORMATION
  Report Type: Spontaneous
  Country: US (occurrence: US)
  Receive Date: 20151124
  Receipt Date: 20151124
  Transmission Date: 20160304
  Serious: Yes (Hospitalization)
  Sender: FDA-Public Use
  Company Number: US-MALLINCKRODT-T201404349

PATIENT
  Age: 55 Year
  Sex: Male
  Weight: 116 kg

DRUGS (2)
  1. BACLOFEN. [Concomitant]
     Active Substance: BACLOFEN
     Indication: MUSCLE SPASTICITY
     Dosage: 10 MG, ONE TABLET Q6H PRN
  2. GABLOFEN [Suspect]
     Active Substance: BACLOFEN
     Indication: MUSCLE SPASTICITY
     Dosage: 214.0 MCG/DAY
     Route: 037
     Dates: start: 20140919

REACTIONS (6)
  - Drug withdrawal syndrome [Recovering/Resolving]
  - Device malfunction [Recovered/Resolved]
  - White blood cell count increased [Recovered/Resolved]
  - Hallucination [Unknown]
  - Fall [Unknown]
  - Contusion [Unknown]

NARRATIVE: CASE EVENT DATE: 201410
